FAERS Safety Report 8164193-5 (Version None)
Quarter: 2012Q1

REPORT INFORMATION
  Report Type: 
  Country: None (occurrence: None)
  Receive Date: 20120224
  Receipt Date: 20120217
  Transmission Date: 20120608
  Serious: Yes (Other)
  Sender: FDA-Public Use
  Company Number: 2012SP000565

PATIENT
  Sex: Male

DRUGS (6)
  1. LUNESTA [Suspect]
     Route: 048
  2. PLAVIX [Concomitant]
     Indication: MYOCARDIAL INFARCTION
  3. ATACAND [Concomitant]
     Indication: HYPERTENSION
  4. LUNESTA [Suspect]
     Indication: INSOMNIA
     Route: 048
     Dates: start: 20100101
  5. FLOMAX [Concomitant]
     Indication: BENIGN PROSTATIC HYPERPLASIA
  6. CRESTOR [Concomitant]
     Indication: BLOOD CHOLESTEROL INCREASED

REACTIONS (2)
  - COLON CANCER [None]
  - INSOMNIA [None]
